FAERS Safety Report 17407604 (Version 1)
Quarter: 2020Q1

REPORT INFORMATION
  Report Type: Other
  Country: US (occurrence: US)
  Receive Date: 20200212
  Receipt Date: 20200212
  Transmission Date: 20200409
  Serious: Yes (Hospitalization, Other)
  Sender: FDA-Public Use
  Company Number: US-INNOGENIX, LLC-2080176

PATIENT
  Age: 38 Year
  Sex: Female

DRUGS (2)
  1. ESMOLOL [Suspect]
     Active Substance: ESMOLOL HYDROCHLORIDE
     Route: 065
  2. PROPRANOLOL HYDROCHLORIDE. [Suspect]
     Active Substance: PROPRANOLOL HYDROCHLORIDE
     Indication: HEART RATE INCREASED
     Route: 065

REACTIONS (4)
  - Heart rate decreased [Recovered/Resolved]
  - Oxygen saturation decreased [Recovered/Resolved]
  - Blood pressure systolic decreased [Recovered/Resolved]
  - Hypoxia [Recovered/Resolved]
